FAERS Safety Report 4934106-5 (Version None)
Quarter: 2006Q1

REPORT INFORMATION
  Report Type: 
  Country: None (occurrence: None)
  Receive Date: 20060303
  Receipt Date: 20060220
  Transmission Date: 20060701
  Serious: Yes (Hospitalization, Other)
  Sender: FDA-Public Use
  Company Number: 2006026042

PATIENT
  Age: 76 Year
  Sex: Male
  Weight: 117.9352 kg

DRUGS (2)
  1. NORVASC [Suspect]
     Indication: HYPERTENSION
  2. LIPITOR [Suspect]
     Indication: MYOCARDIAL INFARCTION

REACTIONS (4)
  - APNOEA [None]
  - CORONARY ARTERY OCCLUSION [None]
  - MYOCARDIAL INFARCTION [None]
  - PULMONARY OEDEMA [None]
